FAERS Safety Report 12128138 (Version 3)
Quarter: 2019Q4

REPORT INFORMATION
  Report Type: Spontaneous
  Country: US (occurrence: US)
  Receive Date: 20160229
  Receipt Date: 20191223
  Transmission Date: 20200122
  Serious: Yes (Other)
  Sender: FDA-Public Use
  Company Number: US-PFIZER INC-2016123430

PATIENT
  Age: 60 Year
  Sex: Male

DRUGS (1)
  1. LYRICA [Suspect]
     Active Substance: PREGABALIN
     Dosage: 300 MG, DAILY

REACTIONS (10)
  - Product dose omission [Unknown]
  - Insomnia [Unknown]
  - Anxiety [Unknown]
  - Neoplasm malignant [Unknown]
  - Headache [Unknown]
  - Hyperhidrosis [Unknown]
  - Diarrhoea [Unknown]
  - Pain in extremity [Unknown]
  - Condition aggravated [Unknown]
  - Nausea [Unknown]
